FAERS Safety Report 5287795-2 (Version None)
Quarter: 2007Q2

REPORT INFORMATION
  Report Type: 
  Country: None (occurrence: None)
  Receive Date: 20070402
  Receipt Date: 20070402
  Transmission Date: 20071010
  Serious: Yes (Hospitalization)
  Sender: FDA-Public Use
  Company Number: None

PATIENT
  Sex: Female
  Weight: 82.1011 kg

DRUGS (13)
  1. CHANTIX [Suspect]
     Indication: SMOKING CESSATION THERAPY
     Dosage: 1MG ONCE DAILY ORALLY
     Route: 048
     Dates: start: 20070307, end: 20070324
  2. SINGULAIR [Concomitant]
  3. ZESTRIL [Concomitant]
  4. SPIRIVA [Concomitant]
  5. PRILOSEC [Concomitant]
  6. ASPIRIN [Concomitant]
  7. LANTUS [Concomitant]
  8. ALBUTEROL NEB AND INHALER [Concomitant]
  9. CELEXA [Concomitant]
  10. BENTYL [Concomitant]
  11. GLUCOPHAGE [Concomitant]
  12. PREDNISONE TAB [Concomitant]
  13. MOBIC [Concomitant]

REACTIONS (6)
  - HYPERSENSITIVITY [None]
  - NAUSEA [None]
  - PETECHIAE [None]
  - RASH [None]
  - SKIN BURNING SENSATION [None]
  - VOMITING [None]
